FAERS Safety Report 8512756-7 (Version None)
Quarter: 2012Q2

REPORT INFORMATION
  Report Type: 
  Country: None (occurrence: None)
  Receive Date: 20120405
  Receipt Date: 20090428
  Transmission Date: 20120825
  Serious: Yes (Disabling)
  Sender: FDA-Public Use
  Company Number: PHEH2009US03564

PATIENT
  Age: 87 Year
  Sex: Female
  Weight: 51.2 kg

DRUGS (4)
  1. LEXAPRO [Concomitant]
  2. CALCIUM WITH VITAMIN D (CALCIUM PHOSPHATE, CALCIUM SODIUM LACTATE, ERG [Concomitant]
  3. PLAVIX [Concomitant]
  4. RECLAST [Suspect]
     Indication: OSTEOPOROSIS
     Dosage: 5 MG, ONCE/SINGLE, INFUSION
     Dates: start: 20090326, end: 20090326

REACTIONS (4)
  - HOSPICE CARE [None]
  - MYALGIA [None]
  - ASTHENIA [None]
  - BODY TEMPERATURE INCREASED [None]
